FAERS Safety Report 9725806 (Version 2)
Quarter: 2013Q4

REPORT INFORMATION
  Report Type: Spontaneous
  Country: GB (occurrence: GB)
  Receive Date: 20131203
  Receipt Date: 20131212
  Transmission Date: 20140711
  Serious: Yes (Death)
  Sender: FDA-Public Use
  Company Number: GB-ASTELLAS-2013EU010667

PATIENT
  Age: 65 Year
  Sex: Male
  Weight: 119 kg

DRUGS (9)
  1. MYCAMINE [Suspect]
     Indication: CANDIDA INFECTION
     Dosage: 150 MG, UNKNOWN/D
     Route: 065
  2. FLUCLOXACILLIN [Concomitant]
     Dosage: UNK
     Route: 042
  3. BENZYLPENICILLIN [Concomitant]
     Dosage: UNK
     Route: 065
  4. PIPERACILLIN/TAZOBACTAM [Concomitant]
     Dosage: UNK
     Route: 065
  5. METRONIDAZOLE [Concomitant]
     Dosage: UNK
     Route: 065
  6. TEICOPLANIN [Concomitant]
     Dosage: UNK
     Route: 065
  7. MEROPENEM [Concomitant]
     Dosage: UNK
     Route: 065
  8. TIGECYCLINE [Concomitant]
     Dosage: UNK
     Route: 065
  9. CIPROFLOXACIN [Concomitant]
     Dosage: UNK
     Route: 065

REACTIONS (2)
  - Drug ineffective [Unknown]
  - Multi-organ failure [Fatal]
